FAERS Safety Report 16761645 (Version 2)
Quarter: 2019Q3

REPORT INFORMATION
  Report Type: Report from Study
  Country: US (occurrence: US)
  Receive Date: 20190830
  Receipt Date: 20190918
  Transmission Date: 20191005
  Serious: No
  Sender: FDA-Public Use
  Company Number: US-SA-2019SA235185

PATIENT
  Age: 66 Year
  Sex: Male
  Weight: 86.17 kg

DRUGS (23)
  1. DUPILUMAB [Suspect]
     Active Substance: DUPILUMAB
     Indication: SINUS DISORDER
     Dosage: 300 MG, QOW
     Route: 058
  2. ZITHROMAX [Concomitant]
     Active Substance: AZITHROMYCIN DIHYDRATE
  3. COENZYME Q10 [Concomitant]
     Active Substance: UBIDECARENONE
  4. VITAMIN K [Concomitant]
     Active Substance: PHYTONADIONE
  5. DOXYCYCLINE HYCLATE. [Concomitant]
     Active Substance: DOXYCYCLINE HYCLATE
  6. CLINDAMYCIN. [Concomitant]
     Active Substance: CLINDAMYCIN
  7. PREDNISOLONE ACETATE. [Concomitant]
     Active Substance: PREDNISOLONE ACETATE
  8. THEOPHYLLINE [Concomitant]
     Active Substance: THEOPHYLLINE ANHYDROUS
     Indication: ASTHMA
  9. PREDNISONE. [Concomitant]
     Active Substance: PREDNISONE
  10. DUPILUMAB [Suspect]
     Active Substance: DUPILUMAB
     Indication: POLYP
  11. NASACORT [Concomitant]
     Active Substance: TRIAMCINOLONE ACETONIDE
  12. LYCOPENE [Concomitant]
     Active Substance: LYCOPENE
  13. LOTEMAX [Concomitant]
     Active Substance: LOTEPREDNOL ETABONATE
  14. LEVALBUTEROL [LEVOSALBUTAMOL] [Concomitant]
     Active Substance: LEVALBUTEROL
  15. DUPILUMAB [Suspect]
     Active Substance: DUPILUMAB
     Indication: RASH
  16. ESOMEPRAZOLE MAGNESIUM. [Concomitant]
     Active Substance: ESOMEPRAZOLE MAGNESIUM
  17. FOLIC ACID. [Concomitant]
     Active Substance: FOLIC ACID
  18. PROSTATE 1 [Concomitant]
  19. GATIFLOXACIN. [Concomitant]
     Active Substance: GATIFLOXACIN
  20. ADVAIR HFA [Concomitant]
     Active Substance: FLUTICASONE PROPIONATE\SALMETEROL XINAFOATE
     Indication: ASTHMA
  21. VENTOLIN HFA [Concomitant]
     Active Substance: ALBUTEROL SULFATE
  22. DUPILUMAB [Suspect]
     Active Substance: DUPILUMAB
     Indication: ASTHMA
     Dosage: 600 MG, 1X
     Route: 058
     Dates: start: 20190810, end: 20190810
  23. XOLAIR [Concomitant]
     Active Substance: OMALIZUMAB

REACTIONS (5)
  - Sinus congestion [Unknown]
  - Therapeutic response decreased [Unknown]
  - Product use in unapproved indication [Unknown]
  - Asthma [Unknown]
  - Rash [Unknown]

NARRATIVE: CASE EVENT DATE: 201908
